FAERS Safety Report 17434147 (Version 1)
Quarter: 2020Q1

REPORT INFORMATION
  Report Type: Spontaneous
  Country: US (occurrence: US)
  Receive Date: 20200219
  Receipt Date: 20200219
  Transmission Date: 20200409
  Serious: No
  Sender: FDA-Public Use
  Company Number: US-BAYER-2020-029335

PATIENT
  Age: 88 Year
  Sex: Male

DRUGS (3)
  1. MIRALAX [Suspect]
     Active Substance: POLYETHYLENE GLYCOL 3350
     Indication: GASTROINTESTINAL DISORDER
     Dosage: UNK, IRR
     Dates: end: 2017
  2. CHOLESTEROL CARE [Concomitant]
  3. MIRALAX [Suspect]
     Active Substance: POLYETHYLENE GLYCOL 3350
     Indication: GASTROINTESTINAL DISORDER
     Dosage: 226 G, QD
     Route: 048
     Dates: start: 2017

REACTIONS (3)
  - Product use issue [Unknown]
  - Drug ineffective [Recovered/Resolved]
  - Extra dose administered [Unknown]
